FAERS Safety Report 20195647 (Version 1)
Quarter: 2021Q4

REPORT INFORMATION
  Report Type: Spontaneous
  Country: US (occurrence: US)
  Receive Date: 20211216
  Receipt Date: 20211216
  Transmission Date: 20220303
  Serious: Yes (Death, Other)
  Sender: FDA-Public Use
  Company Number: US-009507513-2112USA005412

PATIENT
  Age: 85 Year

DRUGS (1)
  1. VERQUVO [Suspect]
     Active Substance: VERICIGUAT
     Route: 048

REACTIONS (1)
  - Death [Fatal]

NARRATIVE: CASE EVENT DATE: 20211213
